FAERS Safety Report 14599429 (Version 1)
Quarter: 2018Q1

REPORT INFORMATION
  Report Type: Spontaneous
  Country: GB (occurrence: GB)
  Receive Date: 20180305
  Receipt Date: 20180305
  Transmission Date: 20180509
  Serious: Yes (Other)
  Sender: FDA-Public Use
  Company Number: GB-JNJFOC-20180235848

PATIENT
  Sex: Female

DRUGS (3)
  1. PROPECIA [Suspect]
     Active Substance: FINASTERIDE
     Indication: PRODUCT USED FOR UNKNOWN INDICATION
     Dosage: YEARS AGO
     Route: 065
  2. REGAINE [Suspect]
     Active Substance: MINOXIDIL
     Route: 065
  3. REGAINE [Suspect]
     Active Substance: MINOXIDIL
     Indication: PRODUCT USED FOR UNKNOWN INDICATION
     Route: 065

REACTIONS (3)
  - Ovulation disorder [Unknown]
  - Abortion spontaneous [Unknown]
  - Exposure via body fluid [Recovered/Resolved]
